FAERS Safety Report 11241351 (Version 2)
Quarter: 2015Q3

REPORT INFORMATION
  Report Type: Report from Study
  Country: US (occurrence: US)
  Receive Date: 20150706
  Receipt Date: 20150901
  Transmission Date: 20151125
  Serious: Yes (Death, Other)
  Sender: FDA-Public Use
  Company Number: US-TEVA-574432USA

PATIENT
  Sex: Female

DRUGS (24)
  1. CARAFATE [Concomitant]
     Active Substance: SUCRALFATE
  2. CLONAZEPAM. [Concomitant]
     Active Substance: CLONAZEPAM
  3. MYRBETRIQ [Concomitant]
     Active Substance: MIRABEGRON
  4. TRAZODONE [Concomitant]
     Active Substance: TRAZODONE HYDROCHLORIDE
  5. DEPO-PROVERA [Concomitant]
     Active Substance: MEDROXYPROGESTERONE ACETATE
  6. MOBIC [Concomitant]
     Active Substance: MELOXICAM
  7. BUPROPION. [Concomitant]
     Active Substance: BUPROPION
  8. AMITIZA [Concomitant]
     Active Substance: LUBIPROSTONE
  9. BENZTROPEINE [Concomitant]
     Active Substance: TROPINE BENZYLATE
  10. DOCQLACE [Concomitant]
     Active Substance: DOCUSATE SODIUM
  11. ESTROGENS [Concomitant]
     Active Substance: ESTROGENS
  12. PREVACID [Concomitant]
     Active Substance: LANSOPRAZOLE
  13. CONCERTA [Concomitant]
     Active Substance: METHYLPHENIDATE HYDROCHLORIDE
  14. MIRALAX [Concomitant]
     Active Substance: POLYETHYLENE GLYCOL 3350
  15. NORETHINDRONE. [Concomitant]
     Active Substance: NORETHINDRONE
  16. CLOZAPINE. [Suspect]
     Active Substance: CLOZAPINE
     Indication: SCHIZOAFFECTIVE DISORDER
     Route: 048
  17. EFFEXOR [Concomitant]
     Active Substance: VENLAFAXINE HYDROCHLORIDE
  18. FERREX [Concomitant]
  19. REGLAN [Concomitant]
     Active Substance: METOCLOPRAMIDE HYDROCHLORIDE
  20. DICYCLOMINE [Concomitant]
     Active Substance: DICYCLOMINE HYDROCHLORIDE
  21. IBUPROFEN. [Concomitant]
     Active Substance: IBUPROFEN
  22. LYRICA [Concomitant]
     Active Substance: PREGABALIN
  23. SENOKOT [Concomitant]
     Active Substance: SENNOSIDES
  24. TRAMADOL. [Concomitant]
     Active Substance: TRAMADOL

REACTIONS (2)
  - Death [Fatal]
  - Haemorrhage [Unknown]
